FAERS Safety Report 5706650-4 (Version None)
Quarter: 2008Q2

REPORT INFORMATION
  Report Type: 
  Country: None (occurrence: None)
  Receive Date: 20080411
  Receipt Date: 20070702
  Transmission Date: 20081010
  Serious: Yes (Other)
  Sender: FDA-Public Use
  Company Number: 2007RR-08349

PATIENT
  Age: 79 Year
  Sex: Male

DRUGS (8)
  1. TAMSULOSIN (TAMSULOSIN) UNKNOWN [Suspect]
     Dates: start: 20020101
  2. ADRENALINE (ADRENALINE) UNKNOWN [Concomitant]
  3. BORIC ACID (BORIC ACID) [Concomitant]
  4. CYCLOPENTOLATE HCL [Concomitant]
  5. EPINEPHRINE BITARTRATE (EPINEPHRINE BITARTRATE) [Concomitant]
  6. KETOROLAC TROMETHAMINE (KETOROLAC) UNKNOWN [Concomitant]
  7. PHENYLEPHRINE (PHENYLEPHRINE) [Concomitant]
  8. PROCAINE (PROCAINE) [Concomitant]

REACTIONS (4)
  - FLOPPY IRIS SYNDROME [None]
  - IRIDOCELE [None]
  - MIOSIS [None]
  - PROCEDURAL COMPLICATION [None]
